FAERS Safety Report 6955220 (Version 2)
Quarter: 2013Q4

REPORT INFORMATION
  Report Type: Spontaneous
  Country: US (occurrence: US)
  Receive Date: 20090330
  Receipt Date: 20131128
  Transmission Date: 20140711
  Serious: Yes (Other)
  Sender: FDA-Public Use
  Company Number: US-ASTRAZENECA-2009UW07540

PATIENT
  Age: 54 Year
  Sex: Female
  Weight: 100.7 kg

DRUGS (7)
  1. NEXIUM [Suspect]
     Indication: GASTROOESOPHAGEAL REFLUX DISEASE
     Route: 048
     Dates: end: 201311
  2. LISINOPRIL [Suspect]
     Route: 048
  3. CRESTOR [Suspect]
     Route: 048
  4. FLUID TABLET [Concomitant]
  5. ZESTRIL [Concomitant]
  6. HYDRO (UNSURE OF NAME) [Concomitant]
     Indication: FLUID REPLACEMENT
     Dosage: 0.25 UNK
  7. ZANTAC [Concomitant]
     Dosage: UNKNOWN UNK
     Dates: start: 2008, end: 2008

REACTIONS (14)
  - Diabetes mellitus [Unknown]
  - Adverse event [Unknown]
  - Weight increased [Unknown]
  - Oesophageal disorder [Unknown]
  - Choking sensation [Unknown]
  - Gait disturbance [Unknown]
  - Limb discomfort [Not Recovered/Not Resolved]
  - Muscle spasms [Not Recovered/Not Resolved]
  - Middle ear effusion [Unknown]
  - Sleep disorder due to a general medical condition [Not Recovered/Not Resolved]
  - Eructation [Not Recovered/Not Resolved]
  - Vertigo [Not Recovered/Not Resolved]
  - Drug dose omission [Unknown]
  - Intentional drug misuse [Unknown]
